FAERS Safety Report 5071730-6 (Version None)
Quarter: 2006Q3

REPORT INFORMATION
  Report Type: 
  Country: None (occurrence: None)
  Receive Date: 20060801
  Receipt Date: 20060719
  Transmission Date: 20061208
  Serious: Yes (Hospitalization)
  Sender: FDA-Public Use
  Company Number: L06-ESP-02888-01

PATIENT
  Age: 36 Year
  Sex: Male

DRUGS (2)
  1. CARBAMAZEPINE [Suspect]
     Indication: EPILEPSY
  2. VALPROIC ACID [Suspect]
     Indication: EPILEPSY

REACTIONS (9)
  - DRUG HYPERSENSITIVITY [None]
  - EOSINOPHILIA [None]
  - HYPERPLASIA [None]
  - LYMPHADENOPATHY [None]
  - LYMPHOCYTOSIS [None]
  - PHARYNGITIS [None]
  - SKIN TEST POSITIVE [None]
  - STEVENS-JOHNSON SYNDROME [None]
  - TOOTHACHE [None]
